FAERS Safety Report 9933569 (Version 2)
Quarter: 2014Q1

REPORT INFORMATION
  Report Type: Report from Study
  Country: US (occurrence: US)
  Receive Date: 20140228
  Receipt Date: 20140228
  Transmission Date: 20141002
  Serious: No
  Sender: FDA-Public Use
  Company Number: US-MYLANLABS-2013S1024586

PATIENT
  Age: 15 Year
  Sex: Male
  Weight: 65.77 kg

DRUGS (1)
  1. AMNESTEEM CAPSULES [Suspect]
     Route: 048

REACTIONS (2)
  - Back pain [Not Recovered/Not Resolved]
  - Unevaluable event [Not Recovered/Not Resolved]
